FAERS Safety Report 23361159 (Version 1)
Quarter: 2024Q1

REPORT INFORMATION
  Report Type: Report from Study
  Country: US (occurrence: US)
  Receive Date: 20240103
  Receipt Date: 20240103
  Transmission Date: 20240410
  Serious: Yes (Other)
  Sender: FDA-Public Use
  Company Number: US-ABBVIE-5566339

PATIENT
  Sex: Female

DRUGS (1)
  1. HUMIRA [Suspect]
     Active Substance: ADALIMUMAB
     Indication: Rheumatoid arthritis
     Dosage: FORM STRENGTH: 40MG?CF
     Route: 058
     Dates: start: 20071023

REACTIONS (4)
  - Colon injury [Unknown]
  - Colostomy [Unknown]
  - Diarrhoea [Unknown]
  - Abdominal hernia [Unknown]
